FAERS Safety Report 22101954 (Version 1)
Quarter: 2023Q1

REPORT INFORMATION
  Report Type: Spontaneous
  Country: US (occurrence: None)
  Receive Date: 20230315
  Receipt Date: 20230315
  Transmission Date: 20230417
  Serious: No
  Sender: FDA-Public Use
  Company Number: None

PATIENT
  Age: 44 Year
  Sex: Female

DRUGS (3)
  1. AMBRISENTAN [Suspect]
     Active Substance: AMBRISENTAN
     Indication: Pulmonary hypertension
     Dosage: FREQUENCY : DAILY;?
     Route: 048
     Dates: start: 20181026
  2. TADALAFIL [Suspect]
     Active Substance: TADALAFIL
  3. LASIX [Suspect]
     Active Substance: FUROSEMIDE

REACTIONS (5)
  - Peripheral swelling [None]
  - Treatment noncompliance [None]
  - Dyspnoea [None]
  - Limb discomfort [None]
  - Therapy change [None]

NARRATIVE: CASE EVENT DATE: 20230221
